FAERS Safety Report 7297511-0 (Version None)
Quarter: 2011Q1

REPORT INFORMATION
  Report Type: 
  Country: None (occurrence: None)
  Receive Date: 20110216
  Receipt Date: 20110211
  Transmission Date: 20110831
  Serious: Yes (Other)
  Sender: FDA-Public Use
  Company Number: US-PFIZER INC-2010175526

PATIENT
  Sex: Male

DRUGS (3)
  1. DILANTIN [Concomitant]
     Indication: CONVULSION
     Dosage: 100 MG, 2 CAPSULES, 3X/DAILY
  2. VITAMIN D [Concomitant]
     Indication: VITAMIN D DEFICIENCY
     Dosage: 50000 IU, WEEKLY
     Dates: start: 20101124, end: 20110119
  3. LYRICA [Suspect]
     Indication: NEUROPATHY PERIPHERAL
     Dosage: 75 MG, UNK
     Route: 048
     Dates: start: 20101201, end: 20101201

REACTIONS (1)
  - SUBCUTANEOUS ABSCESS [None]
